FAERS Safety Report 5972884-7 (Version None)
Quarter: 2008Q4

REPORT INFORMATION
  Report Type: 
  Country: None (occurrence: None)
  Receive Date: 20081126
  Receipt Date: 20081126
  Transmission Date: 20090506
  Serious: No
  Sender: FDA-Public Use
  Company Number: None

PATIENT
  Sex: Female
  Weight: 61.2356 kg

DRUGS (1)
  1. ZYRTEC [Suspect]
     Indication: MULTIPLE ALLERGIES
     Dosage: 1-10MG PILL AS NEEDED PO
     Route: 048
     Dates: start: 19960810, end: 20081125

REACTIONS (3)
  - ERYTHEMA [None]
  - PRURITUS [None]
  - RASH PAPULAR [None]
